FAERS Safety Report 20742030 (Version 1)
Quarter: 2022Q2

REPORT INFORMATION
  Report Type: Report from Study
  Country: IT (occurrence: IT)
  Receive Date: 20220423
  Receipt Date: 20220423
  Transmission Date: 20220721
  Serious: Yes (Hospitalization)
  Sender: FDA-Public Use
  Company Number: None

PATIENT
  Age: 54 Year
  Sex: Male

DRUGS (12)
  1. LORAZEPAM [Suspect]
     Active Substance: LORAZEPAM
     Indication: Anxiety
     Dosage: UNIT DOSE 2 DF
     Route: 048
     Dates: start: 20211119, end: 20211119
  2. LORAZEPAM [Suspect]
     Active Substance: LORAZEPAM
     Route: 048
     Dates: start: 20211119, end: 20211119
  3. TRAZODONE HYDROCHLORIDE [Suspect]
     Active Substance: TRAZODONE HYDROCHLORIDE
     Indication: Depression
     Dosage: TRITTICO 75 MG PROLONGED RELEASE TABLETS, UNIT DOSE 2DF
     Route: 048
     Dates: start: 20211119, end: 20211119
  4. CAMPRAL [Suspect]
     Active Substance: ACAMPROSATE CALCIUM
     Indication: Alcohol withdrawal syndrome
     Dosage: CAMPRAL 333 MG GASTRORESISTANT COATED TABLETS, UNIT DOSE 2DF
     Route: 048
     Dates: start: 20211119, end: 20211119
  5. LYRICA [Suspect]
     Active Substance: PREGABALIN
     Indication: Generalised anxiety disorder
     Dosage: UNIT DOSE 150MG
     Route: 048
     Dates: start: 20211119, end: 20211119
  6. DULOXETINE HYDROCHLORIDE [Suspect]
     Active Substance: DULOXETINE HYDROCHLORIDE
     Indication: Depression
     Dosage: DULOXETINA AUROBINDO 60 MG HARD GASTRORESISTANT CAPSULES, UNIT DOSE 1DF
     Route: 048
     Dates: start: 20211119, end: 20211119
  7. ASENAPINE MALEATE [Concomitant]
     Active Substance: ASENAPINE MALEATE
     Indication: Mania
     Dosage: SYCREST 5 MG SUBLINGUAL TABLETS
     Route: 048
  8. VALPROATE SODIUM [Concomitant]
     Active Substance: VALPROATE SODIUM
     Dosage: DEPAKIN 500 MG GASTRO-RESISTANT TABLETS
     Route: 048
  9. SYNFLEX [Concomitant]
     Indication: Pain
     Dosage: SYNFLEX 550 MG COATED TABLETS
     Route: 048
  10. LEVOMEPROMAZINE [Concomitant]
     Active Substance: LEVOMEPROMAZINE
     Indication: Schizophrenia
     Dosage: NOZINAN 25 MG TABLETS COATED WITH FILM
     Route: 048
  11. WELLBUTRIN [Concomitant]
     Active Substance: BUPROPION HYDROCHLORIDE
     Indication: Depression
     Dosage: WELLBUTRIN 150 MG MODIFIED RELEASE TABLETS.
     Route: 048
  12. QUETIAPINE [Concomitant]
     Active Substance: QUETIAPINE
     Indication: Schizophrenia
     Route: 048

REACTIONS (4)
  - Oral pain [Recovering/Resolving]
  - Suicide attempt [Recovering/Resolving]
  - Feeling jittery [Recovering/Resolving]
  - Psychomotor hyperactivity [Recovering/Resolving]

NARRATIVE: CASE EVENT DATE: 20211119
